FAERS Safety Report 24407323 (Version 1)
Quarter: 2024Q4

REPORT INFORMATION
  Report Type: Spontaneous
  Country: US (occurrence: US)
  Receive Date: 20241007
  Receipt Date: 20241007
  Transmission Date: 20250115
  Serious: Yes (Life-Threatening, Hospitalization, Other)
  Sender: DR REDDYS
  Company Number: None

PATIENT
  Age: 57 Year
  Sex: Female

DRUGS (3)
  1. METOPROLOL [Suspect]
     Active Substance: METOPROLOL
     Indication: Product used for unknown indication
     Dosage: TAKEN IN EVENING
  2. VERAPAMIL [Suspect]
     Active Substance: VERAPAMIL HYDROCHLORIDE
     Indication: Product used for unknown indication
     Dosage: TAKEN IN EVENING
  3. LISINOPRIL [Concomitant]
     Active Substance: LISINOPRIL
     Indication: Product used for unknown indication
     Dosage: TAKEN IN MORNING

REACTIONS (5)
  - BRASH syndrome [Recovering/Resolving]
  - Cardiac failure acute [Recovered/Resolved]
  - Encephalopathy [Unknown]
  - Lactic acidosis [Unknown]
  - Atrial fibrillation [Recovering/Resolving]
